FAERS Safety Report 21657032 (Version 2)
Quarter: 2024Q2

REPORT INFORMATION
  Report Type: Spontaneous
  Country: US (occurrence: US)
  Receive Date: 20221129
  Receipt Date: 20240503
  Transmission Date: 20240715
  Serious: Yes (Other)
  Sender: FDA-Public Use
  Company Number: US-GLAXOSMITHKLINE-US2022174104

PATIENT

DRUGS (2)
  1. BREO ELLIPTA [Suspect]
     Active Substance: FLUTICASONE FUROATE\VILANTEROL TRIFENATATE
     Indication: Asthma
     Dosage: 1 PUFF(S), QD, 100/25 MCG
     Route: 055
     Dates: start: 2019
  2. ELIQUIS [Concomitant]
     Active Substance: APIXABAN
     Indication: Cardiac valve disease
     Dosage: 10 MG, BID, 2XD

REACTIONS (4)
  - Neoplasm malignant [Unknown]
  - Arthropathy [Unknown]
  - Inability to afford medication [Unknown]
  - Product dose omission issue [Unknown]

NARRATIVE: CASE EVENT DATE: 20240418
